FAERS Safety Report 23971226 (Version 1)
Quarter: 2024Q2

REPORT INFORMATION
  Report Type: Spontaneous
  Country: US (occurrence: US)
  Receive Date: 20240613
  Receipt Date: 20240613
  Transmission Date: 20240717
  Serious: Yes (Other)
  Sender: FDA-Public Use
  Company Number: US-DRL-USA-LIT/USA/24/0008374

PATIENT
  Age: 7 Decade
  Sex: Male

DRUGS (2)
  1. GEMCITABINE [Suspect]
     Active Substance: GEMCITABINE
     Indication: Mesothelioma
  2. GEMCITABINE [Suspect]
     Active Substance: GEMCITABINE
     Indication: Dedifferentiated liposarcoma

REACTIONS (2)
  - Drug ineffective for unapproved indication [Unknown]
  - Disease progression [Unknown]
